FAERS Safety Report 9185808 (Version 3)
Quarter: 2013Q2

REPORT INFORMATION
  Report Type: Spontaneous
  Country: JP (occurrence: JP)
  Receive Date: 20130325
  Receipt Date: 20130624
  Transmission Date: 20140414
  Serious: Yes (Life-Threatening, Hospitalization)
  Sender: FDA-Public Use
  Company Number: JP-AMGEN-JPNSP2013019809

PATIENT
  Age: 77 Year
  Sex: Male
  Weight: 46 kg

DRUGS (9)
  1. VECTIBIX [Suspect]
     Indication: COLON CANCER
     Dosage: 300 MG, Q2WK
     Route: 041
     Dates: start: 20121203, end: 20130218
  2. ELPLAT [Concomitant]
     Indication: COLON CANCER
     Dosage: 100 MG, Q2WK
     Route: 041
     Dates: start: 20121119, end: 20130218
  3. CALCIUM LEVOFOLINATE [Concomitant]
     Indication: COLON CANCER
     Dosage: 300 MG, Q2WK
     Route: 041
     Dates: start: 20121119, end: 20130218
  4. 5-FU                               /00098801/ [Concomitant]
     Indication: COLON CANCER
     Dosage: 500 MG, Q2WK
     Route: 040
     Dates: start: 20121119, end: 20130218
  5. 5-FU                               /00098801/ [Concomitant]
     Dosage: 3000 MG, Q2WK
     Route: 041
     Dates: start: 20121119, end: 20130218
  6. ALOXI [Concomitant]
     Indication: COLON CANCER
     Dosage: 0.75 MG, Q2WK
     Route: 041
     Dates: start: 20121119, end: 20130218
  7. MINOMYCIN [Concomitant]
     Dosage: UNK
     Route: 065
  8. DECADRON                           /00016002/ [Concomitant]
     Indication: COLON CANCER
     Dosage: 8 MG, Q2WK
     Route: 041
     Dates: start: 20121119, end: 20130218
  9. ANTIHYPERTENSIVES [Concomitant]
     Indication: HYPERTENSION
     Dosage: UNK
     Route: 065

REACTIONS (2)
  - Pneumothorax [Recovering/Resolving]
  - Interstitial lung disease [Recovering/Resolving]
